FAERS Safety Report 9246592 (Version 1)
Quarter: 2013Q2

REPORT INFORMATION
  Report Type: Spontaneous
  Country: US (occurrence: US)
  Receive Date: 20130422
  Receipt Date: 20130422
  Transmission Date: 20140414
  Serious: Yes (Other)
  Sender: FDA-Public Use
  Company Number: US-PFIZER INC-2013124098

PATIENT
  Age: 69 Year
  Sex: Female
  Weight: 68.93 kg

DRUGS (5)
  1. LYRICA [Suspect]
     Indication: FIBROMYALGIA
     Dosage: UNK, 3X/DAY
     Dates: start: 2012, end: 201211
  2. NEURONTIN [Suspect]
     Indication: FIBROMYALGIA
     Dosage: 400 MG, 3X/DAY
     Dates: start: 201212
  3. SOMA [Suspect]
     Indication: SLEEP DISORDER
     Dosage: 250 MG, 3X/DAY
  4. HYDROCODONE [Suspect]
     Dosage: 10 MG, 4X/DAY
  5. ATIVAN [Concomitant]
     Dosage: 0.5 MG, 3X/DAY

REACTIONS (6)
  - Hip fracture [Unknown]
  - Ligament sprain [Unknown]
  - Fall [Unknown]
  - Weight increased [Unknown]
  - Drug ineffective [Unknown]
  - Nasopharyngitis [Unknown]
